FAERS Safety Report 18963077 (Version 2)
Quarter: 2021Q2

REPORT INFORMATION
  Report Type: Spontaneous
  Country: US (occurrence: US)
  Receive Date: 20210303
  Receipt Date: 20210405
  Transmission Date: 20210717
  Serious: Yes (Other)
  Sender: FDA-Public Use
  Company Number: US-PFIZER INC-2020196304

PATIENT
  Age: 59 Year
  Sex: Female

DRUGS (1)
  1. PREMARIN [Suspect]
     Active Substance: ESTROGENS, CONJUGATED
     Dosage: 0.5 (1G) 3 TIMES EVERY WEEK
     Route: 067

REACTIONS (3)
  - Product use issue [Unknown]
  - Rotator cuff syndrome [Unknown]
  - Off label use [Unknown]
